FAERS Safety Report 7813132-2 (Version None)
Quarter: 2011Q4

REPORT INFORMATION
  Report Type: 
  Country: None (occurrence: None)
  Receive Date: 20111013
  Receipt Date: 20110929
  Transmission Date: 20120403
  Serious: Yes (Other)
  Sender: FDA-Public Use
  Company Number: US-BAYER-2011-094035

PATIENT
  Age: 31 Year
  Sex: Male
  Weight: 56 kg

DRUGS (1)
  1. ALEVE (CAPLET) [Suspect]
     Dosage: 1 DF, ONCE
     Route: 048
     Dates: start: 20110928

REACTIONS (5)
  - SWELLING FACE [None]
  - URTICARIA [None]
  - ABDOMINAL PAIN UPPER [None]
  - PRURITUS GENERALISED [None]
  - HYPERSENSITIVITY [None]
